FAERS Safety Report 7059437-7 (Version None)
Quarter: 2010Q4

REPORT INFORMATION
  Report Type: 
  Country: None (occurrence: None)
  Receive Date: 20101025
  Receipt Date: 20101015
  Transmission Date: 20110411
  Serious: Yes (Other)
  Sender: FDA-Public Use
  Company Number: JP-JNJFOC-20101001944

PATIENT
  Age: 76 Year
  Sex: Male

DRUGS (3)
  1. RISPERDAL [Suspect]
     Indication: DELUSION
     Route: 048
  2. RISPERDAL [Suspect]
     Indication: HALLUCINATION
     Route: 048
  3. GRAMALIL [Concomitant]
     Indication: FACIAL PAIN
     Route: 048

REACTIONS (1)
  - TRIGEMINAL NEURALGIA [None]
